FAERS Safety Report 15895364 (Version 2)
Quarter: 2020Q1

REPORT INFORMATION
  Report Type: Spontaneous
  Country: US (occurrence: US)
  Receive Date: 20190131
  Receipt Date: 20200309
  Transmission Date: 20200409
  Serious: No
  Sender: FDA-Public Use
  Company Number: US-ORPHAN EUROPE-2061987

PATIENT
  Age: 4 Year
  Sex: Male

DRUGS (1)
  1. CARBAGLU [Suspect]
     Active Substance: CARGLUMIC ACID
     Indication: CARBONIC ANHYDRASE GENE MUTATION
     Dates: start: 20181019

REACTIONS (5)
  - Ill-defined disorder [Unknown]
  - Rash [Unknown]
  - Off label use [Unknown]
  - Pruritus [Unknown]
  - Fatigue [Unknown]

NARRATIVE: CASE EVENT DATE: 201810
